FAERS Safety Report 8265023-3 (Version None)
Quarter: 2012Q2

REPORT INFORMATION
  Report Type: 
  Country: None (occurrence: None)
  Receive Date: 20120406
  Receipt Date: 20120322
  Transmission Date: 20120825
  Serious: Yes (Other)
  Sender: FDA-Public Use
  Company Number: PHHY2012IT026240

PATIENT
  Sex: Male

DRUGS (3)
  1. METHOTREXATE [Concomitant]
     Dosage: UNK UKN, UNK
     Dates: start: 20080702, end: 20080901
  2. SANDIMMUNE [Suspect]
     Indication: PSORIATIC ARTHROPATHY
     Dosage: 225 MG, DAILY
     Route: 048
     Dates: start: 20080825, end: 20080901
  3. SANDIMMUNE [Suspect]
     Dosage: 200 MG,DAILY
     Route: 048
     Dates: start: 20080903

REACTIONS (1)
  - HYPERTENSIVE CRISIS [None]
